FAERS Safety Report 5723420-1 (Version None)
Quarter: 2008Q2

REPORT INFORMATION
  Report Type: 
  Country: None (occurrence: None)
  Receive Date: 20080430
  Receipt Date: 20080423
  Transmission Date: 20081010
  Serious: Yes (Other)
  Sender: FDA-Public Use
  Company Number: PHHY2008JP05507

PATIENT
  Sex: Male

DRUGS (2)
  1. NEORAL [Suspect]
     Indication: DEMYELINATING POLYNEUROPATHY
     Dosage: UNK, UNK
     Route: 048
     Dates: end: 20080308
  2. FLUID/ELECTROLYTE REPLACEMENT THERAPY [Suspect]

REACTIONS (3)
  - HYPONATRAEMIA [None]
  - POLYURIA [None]
  - URINE OUTPUT INCREASED [None]
